FAERS Safety Report 25058244 (Version 1)
Quarter: 2025Q1

REPORT INFORMATION
  Report Type: Spontaneous
  Country: IT (occurrence: IT)
  Receive Date: 20250310
  Receipt Date: 20250310
  Transmission Date: 20250409
  Serious: Yes (Other)
  Sender: PFIZER
  Company Number: None

PATIENT
  Age: 6 Year
  Sex: Female
  Weight: 18 kg

DRUGS (8)
  1. METHYLPREDNISOLONE SODIUM SUCCINATE [Suspect]
     Active Substance: METHYLPREDNISOLONE SODIUM SUCCINATE
     Indication: Febrile infection-related epilepsy syndrome
     Route: 042
     Dates: start: 20250103, end: 20250115
  2. LACOSAMIDE [Concomitant]
     Active Substance: LACOSAMIDE
  3. TOPIRAMATE [Concomitant]
     Active Substance: TOPIRAMATE
  4. PROPOFOL [Concomitant]
     Active Substance: PROPOFOL
  5. THIOPENTAL [THIOPENTAL SODIUM] [Concomitant]
  6. MIDAZOLAM [Concomitant]
     Active Substance: MIDAZOLAM
  7. ANAKINRA [Concomitant]
     Active Substance: ANAKINRA
  8. PHENOBARBITAL [Concomitant]
     Active Substance: PHENOBARBITAL

REACTIONS (3)
  - Hypothyroidism [Unknown]
  - Blood corticotrophin decreased [Recovered/Resolved]
  - Off label use [Recovered/Resolved]

NARRATIVE: CASE EVENT DATE: 20250103
